FAERS Safety Report 21051330 (Version 2)
Quarter: 2022Q3

REPORT INFORMATION
  Report Type: Report from Study
  Country: CA (occurrence: CA)
  Receive Date: 20220707
  Receipt Date: 20220715
  Transmission Date: 20221026
  Serious: Yes (Death, Other)
  Sender: FDA-Public Use
  Company Number: CA-BAUSCH-BL-2022-017166

PATIENT
  Age: 62 Year
  Sex: Male

DRUGS (2)
  1. SILIQ [Suspect]
     Active Substance: BRODALUMAB
     Indication: Psoriasis
     Dosage: 210 MG/1.5ML, WEEKLY, WEEK 0 - 22/DEC/2021, WEEK 1 - /DEC/2021, WEEK 2 - /JAN/2022
     Route: 058
     Dates: start: 20211222, end: 202201
  2. SILIQ [Suspect]
     Active Substance: BRODALUMAB
     Dosage: 210 MG/1.5ML, Q 2 WEEKS
     Route: 058
     Dates: start: 2022, end: 202206

REACTIONS (3)
  - Cardiac arrest [Fatal]
  - Myocardial infarction [Unknown]
  - Endocarditis [Unknown]

NARRATIVE: CASE EVENT DATE: 20220601
